FAERS Safety Report 4330576-4 (Version None)
Quarter: 2004Q1

REPORT INFORMATION
  Report Type: 
  Country: None (occurrence: None)
  Receive Date: 20040329
  Receipt Date: 20040311
  Transmission Date: 20041129
  Serious: Yes (Other)
  Sender: FDA-Public Use
  Company Number: CEL-2004-00320-ROC

PATIENT
  Age: 8 Year
  Sex: Male

DRUGS (1)
  1. METADATE CD [Suspect]
     Dosage: 60MG
     Dates: start: 20030301

REACTIONS (4)
  - DEPRESSED LEVEL OF CONSCIOUSNESS [None]
  - INCONTINENCE [None]
  - POSTICTAL STATE [None]
  - SOMNOLENCE [None]
